FAERS Safety Report 11990777 (Version 1)
Quarter: 2016Q1

REPORT INFORMATION
  Report Type: Spontaneous
  Country: US (occurrence: US)
  Receive Date: 20160202
  Receipt Date: 20160202
  Transmission Date: 20160526
  Serious: No
  Sender: FDA-Public Use
  Company Number: US-GALDERMA-US15008144

PATIENT
  Age: 31 Year
  Sex: Female

DRUGS (4)
  1. EPIDUO [Suspect]
     Active Substance: ADAPALENE\BENZOYL PEROXIDE
     Indication: ACNE CYSTIC
     Dosage: 0.1% / 2.5%
     Route: 061
     Dates: start: 20151028, end: 20151031
  2. ACZONE (DAPSONE) [Concomitant]
     Indication: ACNE CYSTIC
     Route: 061
     Dates: start: 20151026, end: 20151031
  3. UNSPECIFIED LOTION [Concomitant]
     Active Substance: UNSPECIFIED INGREDIENT
     Route: 061
  4. HAND MADE TEA TREE OIL SOAP [Concomitant]
     Indication: THERAPEUTIC SKIN CARE TOPICAL
     Route: 061

REACTIONS (12)
  - Rash macular [Recovered/Resolved]
  - Restlessness [Recovered/Resolved]
  - Chest pain [Recovered/Resolved]
  - Urticaria [Recovered/Resolved]
  - Chest discomfort [Recovered/Resolved]
  - Pruritus [Recovered/Resolved]
  - Feeling hot [Recovered/Resolved]
  - Chemical burn of skin [Recovered/Resolved]
  - Erythema [Recovering/Resolving]
  - Dyspnoea [Recovered/Resolved]
  - Skin burning sensation [Recovered/Resolved]
  - Eye swelling [Recovered/Resolved]

NARRATIVE: CASE EVENT DATE: 20151028
